FAERS Safety Report 23255833 (Version 2)
Quarter: 2023Q4

REPORT INFORMATION
  Report Type: Spontaneous
  Country: GB (occurrence: GB)
  Receive Date: 20231204
  Receipt Date: 20231218
  Transmission Date: 20240109
  Serious: Yes (Death, Hospitalization)
  Sender: FDA-Public Use
  Company Number: GB-Vifor (International) Inc.-VIT-2023-09487

PATIENT
  Age: 70 Year
  Sex: Male

DRUGS (2)
  1. TAVNEOS [Suspect]
     Active Substance: AVACOPAN
     Indication: Anti-neutrophil cytoplasmic antibody positive vasculitis
     Dosage: LAST DOSE BEFORE AE WAS ON 13-NOV-2023
     Route: 048
     Dates: start: 20230914, end: 202311
  2. CYCLOPHOSPHAMIDE [Concomitant]
     Active Substance: CYCLOPHOSPHAMIDE
     Indication: Anti-neutrophil cytoplasmic antibody positive vasculitis
     Dosage: UNK
     Dates: start: 20230914, end: 20231026

REACTIONS (5)
  - Cardiac arrest [Fatal]
  - Multiple organ dysfunction syndrome [Fatal]
  - Sepsis [Fatal]
  - Hypertransaminasaemia [Fatal]
  - Pneumonia [Fatal]

NARRATIVE: CASE EVENT DATE: 20231101
